FAERS Safety Report 8899937 (Version 2)
Quarter: 2012Q4

REPORT INFORMATION
  Report Type: 
  Country: BR (occurrence: BR)
  Receive Date: 20121109
  Receipt Date: 20121205
  Transmission Date: 20130627
  Serious: Yes (Other)
  Sender: FDA-Public Use
  Company Number: PHHY2012BR102548

PATIENT
  Sex: Female
  Weight: 73 kg

DRUGS (3)
  1. DIOVAN HCT [Suspect]
     Indication: HYPERTENSION
     Dosage: 1 DF (320mg valsar/12.5mg HCT), per day
     Route: 048
  2. MONOCORDIL [Concomitant]
     Indication: CARDIAC DISORDER
     Dosage: 1 DF, per day
     Route: 048
  3. LORAZEPAN [Concomitant]
     Indication: SLEEP APNOEA SYNDROME
     Dosage: 1 DF, per day
     Route: 048

REACTIONS (2)
  - Joint injury [Recovered/Resolved]
  - Drug ineffective [Unknown]
